FAERS Safety Report 25226201 (Version 2)
Quarter: 2025Q2

REPORT INFORMATION
  Report Type: Spontaneous
  Country: FR (occurrence: FR)
  Receive Date: 20250422
  Receipt Date: 20250521
  Transmission Date: 20250716
  Serious: Yes (Life-Threatening, Hospitalization, Other)
  Sender: EISAI
  Company Number: FR-Eisai-EC-2025-187839

PATIENT
  Age: 67 Year
  Sex: Female
  Weight: 70 kg

DRUGS (5)
  1. LENVIMA [Suspect]
     Active Substance: LENVATINIB
     Indication: Endometrial cancer
     Dates: start: 20250401, end: 20250414
  2. PEMBROLIZUMAB [Concomitant]
     Active Substance: PEMBROLIZUMAB
     Indication: Endometrial cancer
  3. METFORMIN PAMOATE [Concomitant]
     Active Substance: METFORMIN PAMOATE
     Indication: Diabetes mellitus
  4. NEBIVOLOL [Concomitant]
     Active Substance: NEBIVOLOL
     Indication: Hypertension
  5. IRBESARTAN [Concomitant]
     Active Substance: IRBESARTAN
     Indication: Hypertension

REACTIONS (2)
  - Haemorrhagic stroke [Not Recovered/Not Resolved]
  - Hypertensive crisis [Unknown]

NARRATIVE: CASE EVENT DATE: 20250401
